FAERS Safety Report 25254751 (Version 4)
Quarter: 2025Q4

REPORT INFORMATION
  Report Type: Spontaneous
  Country: EU (occurrence: None)
  Receive Date: 20250430
  Receipt Date: 20251126
  Transmission Date: 20260118
  Serious: Yes (Other)
  Sender: UCB
  Company Number: EU-UCBSA-2025024124

PATIENT
  Age: 54 Year
  Weight: 75 kg

DRUGS (13)
  1. KEPPRA [Suspect]
     Active Substance: LEVETIRACETAM
     Indication: Cerebral haemorrhage
     Dosage: 500 MILLIGRAM, 2X/DAY (BID)
  2. KEPPRA [Suspect]
     Active Substance: LEVETIRACETAM
     Indication: Off label use
     Dosage: 250 MILLIGRAM (IN MORNING) DOSE REDUCED
  3. KEPPRA [Suspect]
     Active Substance: LEVETIRACETAM
     Dosage: 1/3 OF 250 MILLIGRAN TABLET IN THE AFTERNOON
  4. KEPPRA [Suspect]
     Active Substance: LEVETIRACETAM
     Dosage: 125 MILLIGRAM
  5. KEPPRA [Suspect]
     Active Substance: LEVETIRACETAM
     Dosage: 100 MILLIGRAM, 3X/DAY (TID)
  6. PANTHENOL [Concomitant]
     Active Substance: PANTHENOL
     Indication: Alopecia
     Dosage: 100 MILLIGRAM, 2X/DAY (BID)
  7. VITAMIN B12 [Concomitant]
     Active Substance: CYANOCOBALAMIN
     Indication: Product used for unknown indication
     Dosage: UNK
  8. VITAMIN D3 [Concomitant]
     Active Substance: CHOLECALCIFEROL
     Indication: Product used for unknown indication
     Dosage: UNK
  9. CALCIUM [Concomitant]
     Active Substance: CALCIUM
     Indication: Product used for unknown indication
     Dosage: UNK
  10. MAGNESIUM [Concomitant]
     Active Substance: MAGNESIUM
     Indication: Nutritional supplementation
     Dosage: UNK
  11. VITAMIN D [Concomitant]
     Active Substance: VITAMIN D NOS
     Indication: Nutritional supplementation
     Dosage: UNK
  12. VITAMIN B COMPLEX [Concomitant]
     Active Substance: CYANOCOBALAMIN\DEXPANTHENOL\NIACINAMIDE\PYRIDOXINE HYDROCHLORIDE\RIBOFLAVIN 5^-PHOSPHATE SODIUM\THIA
     Indication: Nutritional supplementation
     Dosage: UNK
  13. VITAMIN C [Suspect]
     Active Substance: ASCORBIC ACID
     Indication: Product used for unknown indication
     Dosage: UNK

REACTIONS (14)
  - Syncope [Unknown]
  - Cerebral haemorrhage [Unknown]
  - Foreign body in mouth [Unknown]
  - Headache [Recovered/Resolved]
  - Wheezing [Unknown]
  - Urine output increased [Unknown]
  - Polydipsia [Unknown]
  - Presyncope [Unknown]
  - Feeling abnormal [Unknown]
  - Heart rate increased [Unknown]
  - Dyspnoea [Unknown]
  - Head injury [Unknown]
  - Off label use [Unknown]
  - Product use issue [Unknown]
